FAERS Safety Report 9605087 (Version 1)
Quarter: 2013Q4

REPORT INFORMATION
  Report Type: Spontaneous
  Country: US (occurrence: US)
  Receive Date: 20131008
  Receipt Date: 20131008
  Transmission Date: 20140711
  Serious: Yes (Other)
  Sender: FDA-Public Use
  Company Number: US-ELI_LILLY_AND_COMPANY-US201310000402

PATIENT
  Age: 67 Year
  Sex: Female

DRUGS (3)
  1. HUMALOG LISPRO [Suspect]
  2. HUMALOG LISPRO [Suspect]
  3. LANTUS [Concomitant]
     Dosage: UNK

REACTIONS (2)
  - Cerebrovascular accident [Unknown]
  - Mobility decreased [Unknown]
